FAERS Safety Report 10210069 (Version 1)
Quarter: 2014Q2

REPORT INFORMATION
  Report Type: Spontaneous
  Country: GB (occurrence: None)
  Receive Date: 20140528
  Receipt Date: 20140528
  Transmission Date: 20141212
  Serious: Yes (Other)
  Sender: FDA-Public Use
  Company Number: AUR-APL-2014-06042

PATIENT
  Age: 86 Year
  Sex: Female
  Weight: 79.1 kg

DRUGS (7)
  1. AMLODIPINE (AMLODIPINE) [Suspect]
     Indication: PRODUCT USED FOR UNKNOWN INDICATION
  2. ALLOPURINOL (ALLOPURINOL) [Concomitant]
  3. FUROSEMIDE (FUROSEMIDE) [Concomitant]
  4. LEVOTHYROXINE (LEVOTHYROXINE) [Concomitant]
  5. PROTHIADEN (DOSULEPIN HYDROCHLORIDE) [Concomitant]
  6. RAMIPRIL (RAMIPRIL) [Concomitant]
  7. WARFARIN SODIUM (WARFARIN SODIUM) [Concomitant]

REACTIONS (1)
  - Feeling cold [None]
